FAERS Safety Report 26000632 (Version 1)
Quarter: 2025Q4

REPORT INFORMATION
  Report Type: Report from Study
  Country: US (occurrence: US)
  Receive Date: 20251105
  Receipt Date: 20251105
  Transmission Date: 20260118
  Serious: No
  Sender: CELLTRION
  Company Number: US-CELLTRION INC.-2025US025553

PATIENT

DRUGS (2)
  1. INFLIXIMAB-DYYB [Suspect]
     Active Substance: INFLIXIMAB-DYYB
     Indication: Colitis ulcerative
     Dosage: 120 MG, EVERY 14 DAYS
     Route: 058
     Dates: start: 20250710
  2. INFLIXIMAB [Suspect]
     Active Substance: INFLIXIMAB
     Indication: Colitis ulcerative

REACTIONS (2)
  - Headache [Recovering/Resolving]
  - Intentional product use issue [Recovering/Resolving]

NARRATIVE: CASE EVENT DATE: 20250710
